FAERS Safety Report 6936769-1 (Version None)
Quarter: 2010Q3

REPORT INFORMATION
  Report Type: 
  Country: None (occurrence: None)
  Receive Date: 20100818
  Receipt Date: 20100812
  Transmission Date: 20110219
  Serious: Yes (Hospitalization)
  Sender: FDA-Public Use
  Company Number: 016586

PATIENT
  Sex: Female
  Weight: 71 kg

DRUGS (1)
  1. KEPPRA [Suspect]
     Indication: EPILEPSY

REACTIONS (3)
  - OVERDOSE [None]
  - SOMNOLENCE [None]
  - VOMITING [None]
